FAERS Safety Report 4574204-1 (Version None)
Quarter: 2005Q1

REPORT INFORMATION
  Report Type: 
  Country: None (occurrence: None)
  Receive Date: 20050208
  Receipt Date: 20050131
  Transmission Date: 20050727
  Serious: Yes (Death, Hospitalization)
  Sender: FDA-Public Use
  Company Number: 200510366FR

PATIENT
  Age: 79 Year
  Sex: Female
  Weight: 55 kg

DRUGS (14)
  1. LOVENOX [Suspect]
     Route: 058
     Dates: start: 20040917, end: 20040921
  2. HEPARINE SODIQUE DAKOTA PHARM [Suspect]
     Dosage: DOSE UNIT: INTERNATIONAL UNITS PER HOUR
     Route: 042
     Dates: start: 20040915, end: 20040916
  3. FLUDEX - SLOW RELEASE [Concomitant]
     Indication: ESSENTIAL HYPERTENSION
     Route: 048
     Dates: end: 20040922
  4. NICARDIPINE HCL [Concomitant]
     Indication: ESSENTIAL HYPERTENSION
     Route: 048
     Dates: end: 20040922
  5. COVERSYL [Concomitant]
     Indication: ESSENTIAL HYPERTENSION
     Route: 048
     Dates: end: 20040922
  6. STAGID [Concomitant]
     Route: 048
     Dates: end: 20040922
  7. MIXTARD 10/90 [Concomitant]
     Route: 058
     Dates: end: 20040922
  8. ZOCOR [Concomitant]
     Route: 048
     Dates: end: 20040922
  9. HYPERIUM [Concomitant]
     Route: 048
     Dates: end: 20040922
  10. KARDEGIC [Concomitant]
     Route: 048
     Dates: start: 20040819, end: 20040922
  11. TOPALGIC 50 MG [Concomitant]
     Route: 048
  12. FUROSEMIDE [Concomitant]
     Route: 048
  13. CLONAZEPAM [Concomitant]
     Dosage: DOSE: 3-3-4
     Route: 048
  14. ANAFRANIL [Concomitant]
     Route: 048

REACTIONS (3)
  - DEEP VEIN THROMBOSIS [None]
  - INTESTINAL INFARCTION [None]
  - THROMBOCYTOPENIA [None]
